FAERS Safety Report 6122096-1 (Version None)
Quarter: 2009Q1

REPORT INFORMATION
  Report Type: 
  Country: None (occurrence: None)
  Receive Date: 20090316
  Receipt Date: 20090316
  Transmission Date: 20090719
  Serious: No
  Sender: FDA-Public Use
  Company Number: None

PATIENT
  Age: 63 Year
  Sex: Male
  Weight: 83.9154 kg

DRUGS (1)
  1. NASONEX [Suspect]
     Indication: NASAL CONGESTION
     Dosage: 2 SQUIRTS ONCE PER DAY NASAL
     Route: 045
     Dates: start: 20030601, end: 20081201

REACTIONS (3)
  - NASAL CONGESTION [None]
  - PAIN [None]
  - PAIN IN EXTREMITY [None]
